FAERS Safety Report 13401638 (Version 1)
Quarter: 2017Q2

REPORT INFORMATION
  Report Type: Report from Study
  Country: US (occurrence: US)
  Receive Date: 20170404
  Receipt Date: 20170404
  Transmission Date: 20170830
  Serious: Yes (Other)
  Sender: FDA-Public Use
  Company Number: US-UCBSA-2017012214

PATIENT
  Age: 18 Year

DRUGS (1)
  1. LEVETIRACETAM. [Suspect]
     Active Substance: LEVETIRACETAM
     Indication: JUVENILE MYOCLONIC EPILEPSY
     Dosage: 750 MG, 2X/DAY (BID)

REACTIONS (11)
  - Amnesia [Unknown]
  - Loss of consciousness [Unknown]
  - Dyskinesia [Not Recovered/Not Resolved]
  - Confusional state [Unknown]
  - Headache [Unknown]
  - Feeling abnormal [Unknown]
  - Fall [Unknown]
  - Insomnia [Unknown]
  - Staring [Unknown]
  - Head injury [Unknown]
  - Dizziness [Unknown]
